FAERS Safety Report 10208634 (Version 1)
Quarter: 2014Q2

REPORT INFORMATION
  Report Type: Report from Study
  Country: TR (occurrence: TR)
  Receive Date: 20140530
  Receipt Date: 20140530
  Transmission Date: 20141212
  Serious: Yes (Disabling, Other)
  Sender: FDA-Public Use
  Company Number: PHHY2014TR063706

PATIENT
  Sex: Male
  Weight: 98 kg

DRUGS (8)
  1. DIGOXIN [Suspect]
     Dosage: UNK UKN, UNK
  2. LIPITOR [Suspect]
     Dosage: UNK UKN, UNK
  3. CARDURA [Suspect]
     Dosage: UNK UKN, UNK
  4. BELOC [Suspect]
     Dosage: UNK UKN, UNK
  5. COUMADINE [Suspect]
     Indication: ANTICOAGULANT THERAPY
     Dosage: 5 MG, UNK
  6. COUMADINE [Suspect]
     Indication: BLOOD VISCOSITY INCREASED
  7. DESAL (FUROSEMIDE) [Suspect]
     Dosage: UNK UKN, UNK
  8. MONOKET [Suspect]
     Dosage: UNK UKN, UNK

REACTIONS (7)
  - Chest pain [Not Recovered/Not Resolved]
  - Intestinal haemorrhage [Unknown]
  - Gastric haemorrhage [Unknown]
  - Activities of daily living impaired [None]
  - Hypoaesthesia [None]
  - Blood urea increased [None]
  - Blood creatinine increased [None]
